FAERS Safety Report 23816068 (Version 1)
Quarter: 2024Q2

REPORT INFORMATION
  Report Type: Spontaneous
  Country: US (occurrence: None)
  Receive Date: 20240503
  Receipt Date: 20240503
  Transmission Date: 20240716
  Serious: Yes (Hospitalization)
  Sender: FDA-Public Use
  Company Number: None

PATIENT
  Age: 74 Year
  Sex: Female
  Weight: 77 kg

DRUGS (12)
  1. GEMTUZUMAB OZOGAMICIN [Suspect]
     Active Substance: GEMTUZUMAB OZOGAMICIN
     Indication: Acute myeloid leukaemia
     Dosage: OTHER ROUTE : INTRAVENOUS DRIP;?
     Route: 041
     Dates: start: 20240327, end: 20240402
  2. TAGRAXOFUSP-ERZS [Suspect]
     Active Substance: TAGRAXOFUSP-ERZS
     Indication: Acute myeloid leukaemia
     Dosage: OTHER QUANTITY : 7 UGM/KG;?OTHER ROUTE : INTRAVENOUS DRIP;?
     Route: 050
     Dates: start: 20240410, end: 20240416
  3. CARBIDOPA-LEVADOPA (SINEMET CR) [Concomitant]
  4. POTASSIUM CHLORIDE (K-LOR) [Concomitant]
  5. CHOLECALCIFEROL (VITAMIN D) [Concomitant]
  6. POLYVINYL ALCOHOL-POVIDONE PF (REFRESH) [Concomitant]
  7. VALACYCLOVIR (VALTREX) [Concomitant]
  8. CRESEMBA [Concomitant]
     Active Substance: ISAVUCONAZONIUM SULFATE
  9. REMERON [Concomitant]
     Active Substance: MIRTAZAPINE
  10. METHYLPREDNISOLONE [Concomitant]
     Active Substance: METHYLPREDNISOLONE
  11. LASIX [Concomitant]
     Active Substance: FUROSEMIDE
  12. ALBUMIN HUMAN [Concomitant]
     Active Substance: ALBUMIN HUMAN

REACTIONS (16)
  - Creatinine renal clearance increased [None]
  - Asthenia [None]
  - Fatigue [None]
  - Somnolence [None]
  - Fall [None]
  - Balance disorder [None]
  - Sinus tachycardia [None]
  - Respiratory rate increased [None]
  - Oxygen saturation decreased [None]
  - Pneumonia [None]
  - Sepsis [None]
  - Haemoglobin decreased [None]
  - Infection [None]
  - Blood albumin decreased [None]
  - Platelet count decreased [None]
  - Febrile neutropenia [None]

NARRATIVE: CASE EVENT DATE: 20240422
